FAERS Safety Report 11208456 (Version 2)
Quarter: 2015Q3

REPORT INFORMATION
  Report Type: Report from Study
  Country: US (occurrence: US)
  Receive Date: 20150622
  Receipt Date: 20150807
  Transmission Date: 20151125
  Serious: No
  Sender: FDA-Public Use
  Company Number: US-ABBVIE-15P-163-1403108-00

PATIENT
  Sex: Female

DRUGS (3)
  1. VIEKIRA PAK [Suspect]
     Active Substance: DASABUVIR\OMBITASVIR\PARITAPREVIR\RITONAVIR
     Indication: HEPATITIS C
     Dosage: 2 PINK TABS AND 1 BEIGE TAB IN AM; 1 BEIGE TAB IN PM
     Route: 048
     Dates: start: 201505
  2. ATIVAN [Concomitant]
     Active Substance: LORAZEPAM
     Indication: PRODUCT USED FOR UNKNOWN INDICATION
  3. RIBAVIRIN. [Concomitant]
     Active Substance: RIBAVIRIN
     Indication: PRODUCT USED FOR UNKNOWN INDICATION

REACTIONS (7)
  - Blister [Unknown]
  - Skin burning sensation [Unknown]
  - Irritability [Recovering/Resolving]
  - Feeling hot [Recovering/Resolving]
  - Dehydration [Recovering/Resolving]
  - Pruritus [Unknown]
  - Agitation [Unknown]
